FAERS Safety Report 4698758-X (Version None)
Quarter: 2005Q2

REPORT INFORMATION
  Report Type: 
  Country: None (occurrence: None)
  Receive Date: 20050621
  Receipt Date: 20050601
  Transmission Date: 20051028
  Serious: Yes (Hospitalization)
  Sender: FDA-Public Use
  Company Number: 2005P1000035

PATIENT
  Age: 21 Year
  Sex: Female

DRUGS (2)
  1. NICARDIPINE HYDROCHLORIDE (NICARDIPINE [Suspect]
     Indication: THREATENED LABOUR
     Dosage: 2 MG
  2. BETAMETHASONE [Concomitant]

REACTIONS (20)
  - ACUTE PULMONARY OEDEMA [None]
  - ALBUMINURIA [None]
  - BLOOD CALCIUM DECREASED [None]
  - BLOOD LACTATE DEHYDROGENASE INCREASED [None]
  - BLOOD MAGNESIUM DECREASED [None]
  - BLOOD PH INCREASED [None]
  - BLOOD POTASSIUM DECREASED [None]
  - BLOOD PRESSURE DIASTOLIC DECREASED [None]
  - BLOOD UREA DECREASED [None]
  - BRAIN NATRIURETIC PEPTIDE INCREASED [None]
  - CARBON DIOXIDE DECREASED [None]
  - COUGH [None]
  - DRUG EXPOSURE DURING PREGNANCY [None]
  - DYSPNOEA [None]
  - HAEMOGLOBIN DECREASED [None]
  - PCO2 DECREASED [None]
  - PO2 DECREASED [None]
  - TACHYCARDIA [None]
  - TROPONIN INCREASED [None]
  - WHITE BLOOD CELL COUNT INCREASED [None]
